FAERS Safety Report 7605377-1 (Version None)
Quarter: 2011Q3

REPORT INFORMATION
  Report Type: 
  Country: None (occurrence: None)
  Receive Date: 20110713
  Receipt Date: 20110707
  Transmission Date: 20111222
  Serious: Yes (Death)
  Sender: FDA-Public Use
  Company Number: US-CELGENEUS-163-21880-11070759

PATIENT
  Sex: Female

DRUGS (1)
  1. REVLIMID [Suspect]
     Indication: MULTIPLE MYELOMA
     Dosage: 7.5 MILLIGRAM
     Route: 048
     Dates: start: 20100212

REACTIONS (5)
  - DECREASED APPETITE [None]
  - DEEP VEIN THROMBOSIS [None]
  - DEATH [None]
  - WEIGHT DECREASED [None]
  - FATIGUE [None]
